FAERS Safety Report 13290731 (Version 2)
Quarter: 2017Q1

REPORT INFORMATION
  Report Type: Spontaneous
  Country: US (occurrence: US)
  Receive Date: 20170302
  Receipt Date: 20170306
  Transmission Date: 20170428
  Serious: Yes (Other)
  Sender: FDA-Public Use
  Company Number: US-TEVA-744650USA

PATIENT
  Sex: Female
  Weight: 90.35 kg

DRUGS (2)
  1. PROAIR HFA [Suspect]
     Active Substance: ALBUTEROL SULFATE
     Route: 055
  2. ESTRADIOL. [Concomitant]
     Active Substance: ESTRADIOL

REACTIONS (8)
  - Anger [Unknown]
  - Diarrhoea [Unknown]
  - Nervousness [Unknown]
  - Pyrexia [Unknown]
  - Feeling abnormal [Unknown]
  - Post-traumatic stress disorder [Unknown]
  - Clostridium difficile infection [Unknown]
  - Incorrect product storage [Unknown]
